FAERS Safety Report 12173086 (Version 1)
Quarter: 2016Q1

REPORT INFORMATION
  Report Type: Report from Study
  Country: US (occurrence: US)
  Receive Date: 20160311
  Receipt Date: 20160311
  Transmission Date: 20160526
  Serious: Yes (Other)
  Sender: FDA-Public Use
  Company Number: US-BAYER-2016-046223

PATIENT
  Age: 62 Year
  Sex: Male
  Weight: 91.61 kg

DRUGS (2)
  1. ADEMPAS [Suspect]
     Active Substance: RIOCIGUAT
     Dosage: UNK
     Dates: start: 20150805
  2. ADEMPAS [Suspect]
     Active Substance: RIOCIGUAT
     Dosage: 1.5 MG, TID
     Route: 048

REACTIONS (4)
  - Transfusion [Unknown]
  - Anaemia [Unknown]
  - Dizziness [Unknown]
  - Headache [Unknown]
